FAERS Safety Report 4899168-2 (Version None)
Quarter: 2006Q1

REPORT INFORMATION
  Report Type: 
  Country: None (occurrence: None)
  Receive Date: 20060127
  Receipt Date: 20050614
  Transmission Date: 20060701
  Serious: Yes (Life-Threatening, Hospitalization, Other)
  Sender: FDA-Public Use
  Company Number: 200310186BBE

PATIENT
  Age: 61 Year
  Sex: Male

DRUGS (10)
  1. GAMIMUNE N 10% [Suspect]
     Indication: GAMMOPATHY
     Dosage: SEE IMAGE
     Route: 042
     Dates: start: 20030829
  2. GAMIMUNE N 10% [Suspect]
     Indication: NEUROPATHY PERIPHERAL
     Dosage: SEE IMAGE
     Route: 042
     Dates: start: 20030829
  3. GAMIMUNE N 10% [Suspect]
     Indication: GAMMOPATHY
     Dosage: SEE IMAGE
     Route: 042
     Dates: start: 20030829
  4. GAMIMUNE N 10% [Suspect]
     Indication: NEUROPATHY PERIPHERAL
     Dosage: SEE IMAGE
     Route: 042
     Dates: start: 20030829
  5. GAMIMUNE N 10% [Suspect]
     Indication: GAMMOPATHY
     Dosage: SEE IMAGE
     Route: 042
     Dates: start: 20030829
  6. GAMIMUNE N 10% [Suspect]
     Indication: NEUROPATHY PERIPHERAL
     Dosage: SEE IMAGE
     Route: 042
     Dates: start: 20030829
  7. GAMIMUNE N 10% [Suspect]
  8. GAMIMUNE N 10% [Suspect]
  9. TYLENOL (CAPLET) [Concomitant]
  10. BENADRYL [Concomitant]

REACTIONS (17)
  - AMNESIA [None]
  - ANAPHYLACTIC REACTION [None]
  - BLOOD PRESSURE INCREASED [None]
  - CHEST PAIN [None]
  - CONDITION AGGRAVATED [None]
  - DIPLOPIA [None]
  - FLATULENCE [None]
  - HEART RATE INCREASED [None]
  - INCORRECT DRUG ADMINISTRATION RATE [None]
  - INFUSION RELATED REACTION [None]
  - MEMORY IMPAIRMENT [None]
  - NEUROPATHY PERIPHERAL [None]
  - PHARMACEUTICAL PRODUCT COMPLAINT [None]
  - RASH [None]
  - RESPIRATORY RATE INCREASED [None]
  - VISION BLURRED [None]
  - VISUAL DISTURBANCE [None]
